FAERS Safety Report 5331768-8 (Version None)
Quarter: 2007Q2

REPORT INFORMATION
  Report Type: 
  Country: None (occurrence: None)
  Receive Date: 20070517
  Receipt Date: 20070511
  Transmission Date: 20071010
  Serious: No
  Sender: FDA-Public Use
  Company Number: 43260

PATIENT
  Age: 56 Year
  Sex: Female
  Weight: 63.05 kg

DRUGS (5)
  1. NICOTINE [Suspect]
     Indication: SMOKING CESSATION THERAPY
     Dosage: 4 MG/3 LOZENGES/ORAL
     Route: 048
     Dates: start: 20070429, end: 20070430
  2. PLAVIX [Concomitant]
  3. NEXIUM [Concomitant]
  4. DICYCLOMINE [Concomitant]
  5. FOSAMAX [Concomitant]

REACTIONS (5)
  - BLOOD PRESSURE INCREASED [None]
  - GAIT DISTURBANCE [None]
  - HYPERSENSITIVITY [None]
  - SPEECH DISORDER [None]
  - WEIGHT DECREASED [None]
